FAERS Safety Report 7492376-6 (Version None)
Quarter: 2011Q2

REPORT INFORMATION
  Report Type: 
  Country: None (occurrence: None)
  Receive Date: 20110519
  Receipt Date: 20101230
  Transmission Date: 20111010
  Serious: Yes (Hospitalization, Other)
  Sender: FDA-Public Use
  Company Number: US-BAYER-201030179NA

PATIENT
  Age: 17 Year
  Sex: Female
  Weight: 102 kg

DRUGS (2)
  1. COUMADIN [Concomitant]
     Dosage: 6 MG, QD
  2. YASMIN [Suspect]
     Indication: METRORRHAGIA
     Route: 048
     Dates: start: 20051001

REACTIONS (1)
  - DEEP VEIN THROMBOSIS [None]
